APPROVED DRUG PRODUCT: BUTABARBITAL SODIUM
Active Ingredient: BUTABARBITAL SODIUM
Strength: 30MG/5ML
Dosage Form/Route: ELIXIR;ORAL
Application: A085383 | Product #001
Applicant: WOCKHARDT EU OPERATIONS (SWISS) AG
Approved: Approved Prior to Jan 1, 1982 | RLD: No | RS: No | Type: DISCN